FAERS Safety Report 18096484 (Version 1)
Quarter: 2020Q3

REPORT INFORMATION
  Report Type: Spontaneous
  Country: US (occurrence: US)
  Receive Date: 20200731
  Receipt Date: 20200731
  Transmission Date: 20201103
  Serious: No
  Sender: FDA-Public Use
  Company Number: US-DRREDDYS-USA/USA/20/0125392

PATIENT
  Age: 45 Year
  Sex: Male
  Weight: 81 kg

DRUGS (3)
  1. SUMATRIPTAN INJECTION USP, 6 MG/0.5 ML [Suspect]
     Active Substance: SUMATRIPTAN
     Indication: MIGRAINE
     Dosage: 6 MG/0.5 ML
     Route: 058
  2. CRESTOR [Concomitant]
     Active Substance: ROSUVASTATIN CALCIUM
     Indication: PRODUCT USED FOR UNKNOWN INDICATION
  3. TORADOL [Concomitant]
     Active Substance: KETOROLAC TROMETHAMINE
     Indication: HEADACHE

REACTIONS (2)
  - Product dose omission issue [Unknown]
  - Product quality issue [Unknown]
